FAERS Safety Report 18024218 (Version 6)
Quarter: 2020Q3

REPORT INFORMATION
  Report Type: Spontaneous
  Country: US (occurrence: US)
  Receive Date: 20200714
  Receipt Date: 20200904
  Transmission Date: 20201103
  Serious: Yes (Death, Hospitalization)
  Sender: FDA-Public Use
  Company Number: US-SEATTLE GENETICS-2020SGN02678

PATIENT
  Sex: Female

DRUGS (5)
  1. CAPECITABINE. [Concomitant]
     Active Substance: CAPECITABINE
     Indication: BREAST CANCER FEMALE
  2. FOLIC ACID. [Concomitant]
     Active Substance: FOLIC ACID
  3. VITAMIN D                          /00107901/ [Concomitant]
     Active Substance: ERGOCALCIFEROL
  4. CALCIUM [Concomitant]
     Active Substance: CALCIUM
  5. TUKYSA [Suspect]
     Active Substance: TUCATINIB
     Indication: BREAST CANCER FEMALE
     Dosage: 150 MG, UNK
     Route: 048

REACTIONS (8)
  - Speech disorder [Unknown]
  - Hepatic enzyme increased [Unknown]
  - Dry skin [Unknown]
  - Blood glucose increased [Recovering/Resolving]
  - Ocular icterus [Unknown]
  - Central nervous system lesion [Unknown]
  - Death [Fatal]
  - Urinary tract infection [Unknown]
